FAERS Safety Report 21042153 (Version 1)
Quarter: 2022Q3

REPORT INFORMATION
  Report Type: Spontaneous
  Country: FR (occurrence: FR)
  Receive Date: 20220705
  Receipt Date: 20220705
  Transmission Date: 20221027
  Serious: Yes (Hospitalization, Other)
  Sender: FDA-Public Use
  Company Number: FR-AFSSAPS-CF20180652

PATIENT
  Age: 18 Year
  Sex: Male

DRUGS (1)
  1. TRAMADOL [Suspect]
     Active Substance: TRAMADOL
     Indication: Cluster headache
     Dosage: 100 MILLIGRAM, DAILY
     Route: 048
     Dates: start: 2018

REACTIONS (13)
  - Cardio-respiratory arrest [Recovering/Resolving]
  - Hepatic failure [Recovering/Resolving]
  - Pneumonia aspiration [Recovering/Resolving]
  - Lactic acidosis [Recovering/Resolving]
  - Multiple organ dysfunction syndrome [Recovering/Resolving]
  - Renal failure [Recovering/Resolving]
  - Rhabdomyolysis [Recovering/Resolving]
  - Thrombocytopenia [Recovering/Resolving]
  - Cell death [Recovering/Resolving]
  - Hypoglycaemia [Recovering/Resolving]
  - Overdose [Recovering/Resolving]
  - Intentional product misuse [Recovering/Resolving]
  - Toxicity to various agents [Recovering/Resolving]

NARRATIVE: CASE EVENT DATE: 20180101
